FAERS Safety Report 11131683 (Version 1)
Quarter: 2015Q2

REPORT INFORMATION
  Report Type: Spontaneous
  Country: IT (occurrence: IT)
  Receive Date: 20150522
  Receipt Date: 20150522
  Transmission Date: 20150821
  Serious: Yes (Other)
  Sender: FDA-Public Use
  Company Number: IT-PFIZER INC-2015171028

PATIENT
  Age: 78 Year
  Sex: Male

DRUGS (4)
  1. APROVEL [Concomitant]
     Active Substance: IRBESARTAN
     Indication: HYPERTENSION
     Dosage: 150 MG, UNK
     Route: 048
  2. TAZOCIN [Suspect]
     Active Substance: PIPERACILLIN SODIUM\TAZOBACTAM SODIUM
     Indication: PLEURAL EFFUSION
     Dosage: 4 G, DAILY
     Route: 030
     Dates: start: 20150418, end: 20150419
  3. URBASON SOLUB [Concomitant]
     Indication: PLEURAL EFFUSION
     Dosage: 40 MG, UNK
     Route: 048
     Dates: start: 20150401, end: 20150419
  4. LASIX [Concomitant]
     Active Substance: FUROSEMIDE
     Indication: PLEURAL EFFUSION
     Dosage: 250 MG, UNK
     Route: 030
     Dates: start: 20150418, end: 20150419

REACTIONS (3)
  - Pain of skin [Not Recovered/Not Resolved]
  - Drug hypersensitivity [Not Recovered/Not Resolved]
  - Urticaria [Not Recovered/Not Resolved]

NARRATIVE: CASE EVENT DATE: 20150418
